FAERS Safety Report 19339635 (Version 1)
Quarter: 2021Q2

REPORT INFORMATION
  Report Type: Spontaneous
  Country: US (occurrence: US)
  Receive Date: 20210530
  Receipt Date: 20210530
  Transmission Date: 20210717
  Serious: Yes (Other)
  Sender: FDA-Public Use
  Company Number: US-PURDUE-USA-2020-0202359

PATIENT
  Sex: Female

DRUGS (5)
  1. OXYFAST [Suspect]
     Active Substance: OXYCODONE
     Indication: THERMAL BURN
     Dosage: UNK
     Route: 065
  2. OXYCONTIN [Suspect]
     Active Substance: OXYCODONE HYDROCHLORIDE
     Indication: THERMAL BURN
     Dosage: UNK
     Route: 048
  3. MS CONTIN [Suspect]
     Active Substance: MORPHINE SULFATE
     Indication: THERMAL BURN
     Dosage: UNK
     Route: 048
  4. DILAUDID [Suspect]
     Active Substance: HYDROMORPHONE HYDROCHLORIDE
     Indication: THERMAL BURN
     Dosage: UNK
     Route: 048
  5. OXYIR [Suspect]
     Active Substance: OXYCODONE HYDROCHLORIDE
     Indication: THERMAL BURN
     Dosage: UNK
     Route: 065

REACTIONS (4)
  - Drug dependence [Unknown]
  - Depression [Unknown]
  - Anxiety [Unknown]
  - Overdose [Unknown]
